FAERS Safety Report 8277020-2 (Version None)
Quarter: 2012Q2

REPORT INFORMATION
  Report Type: 
  Country: None (occurrence: None)
  Receive Date: 20120412
  Receipt Date: 20120330
  Transmission Date: 20120825
  Serious: Yes (Death)
  Sender: FDA-Public Use
  Company Number: CA-ROCHE-1055685

PATIENT
  Sex: Male
  Weight: 81.72 kg

DRUGS (3)
  1. CURCUMIN 95 [Concomitant]
  2. AVASTIN [Suspect]
     Indication: GLIOBLASTOMA
     Route: 042
     Dates: start: 20110810, end: 20110810
  3. DILANTIN [Concomitant]

REACTIONS (1)
  - DEATH [None]
